FAERS Safety Report 17374958 (Version 1)
Quarter: 2020Q1

REPORT INFORMATION
  Report Type: Spontaneous
  Country: US (occurrence: US)
  Receive Date: 20200204
  Receipt Date: 20200204
  Transmission Date: 20200409
  Serious: Yes (Life-Threatening, Hospitalization)
  Sender: FDA-Public Use
  Company Number: None

PATIENT
  Age: 55 Year
  Sex: Female
  Weight: 71.1 kg

DRUGS (4)
  1. EMPAGLIFLOZIN [Suspect]
     Active Substance: EMPAGLIFLOZIN
     Route: 048
     Dates: start: 20190511, end: 20200105
  2. LISPRO [Concomitant]
     Active Substance: INSULIN LISPRO
  3. METFORMIN [Concomitant]
     Active Substance: METFORMIN HYDROCHLORIDE
     Dates: start: 19990301
  4. GLARGINE [Concomitant]

REACTIONS (4)
  - Therapy cessation [None]
  - Diabetic ketoacidosis [None]
  - Mental status changes [None]
  - Myocardial infarction [None]

NARRATIVE: CASE EVENT DATE: 20200107
